FAERS Safety Report 5132425-3 (Version None)
Quarter: 2006Q4

REPORT INFORMATION
  Report Type: 
  Country: None (occurrence: None)
  Receive Date: 20061017
  Receipt Date: 20061004
  Transmission Date: 20070319
  Serious: Yes (Hospitalization)
  Sender: FDA-Public Use
  Company Number: 2006108483

PATIENT
  Age: 87 Year
  Sex: Female

DRUGS (8)
  1. UNASYN [Suspect]
     Indication: URINARY TRACT INFECTION
     Dosage: 3 GRAM (2 IN 1 D), INTRAVENOUS
     Route: 042
     Dates: start: 20060809, end: 20060904
  2. UNASYN ORAL [Concomitant]
  3. ASPIRIN [Concomitant]
  4. ZESTRIL [Concomitant]
  5. BIOFERMIN (BACILLUS SUBTILIS, LACTOBACILLUS ACIDOPHILUS, STREPTOCOCCUS [Concomitant]
  6. MARZULENE S (LEVOGLUTAMIDE, SODIUM GUALENATE) [Concomitant]
  7. BESACOLIN (BETHANECHOL CHLORIDE) [Concomitant]
  8. MAGNESIUM OXIDE (MAGNESIUM OXIDE) [Concomitant]

REACTIONS (4)
  - ANOREXIA [None]
  - DEPRESSED LEVEL OF CONSCIOUSNESS [None]
  - ORAL INTAKE REDUCED [None]
  - RENAL FAILURE ACUTE [None]
